FAERS Safety Report 10420950 (Version 1)
Quarter: 2014Q3

REPORT INFORMATION
  Report Type: Spontaneous
  Country: US (occurrence: None)
  Receive Date: 20140829
  Receipt Date: 20140829
  Transmission Date: 20150326
  Serious: Yes (Hospitalization)
  Sender: FDA-Public Use
  Company Number: None

PATIENT
  Age: 67 Year
  Sex: Male
  Weight: 100.1 kg

DRUGS (1)
  1. WARFARIN [Suspect]
     Active Substance: WARFARIN
     Route: 048
     Dates: start: 20120828

REACTIONS (5)
  - Haemothorax [None]
  - International normalised ratio increased [None]
  - Metastases to pleura [None]
  - Pleural effusion [None]
  - Haemorrhage [None]

NARRATIVE: CASE EVENT DATE: 20140510
